FAERS Safety Report 10074073 (Version 1)
Quarter: 2014Q2

REPORT INFORMATION
  Report Type: Spontaneous
  Country: US (occurrence: US)
  Receive Date: 20140411
  Receipt Date: 20140411
  Transmission Date: 20141212
  Serious: No
  Sender: FDA-Public Use
  Company Number: US-SA-2014SA006742

PATIENT
  Age: 43 Year
  Sex: Male

DRUGS (1)
  1. ALLEGRA-D, 24 HR [Suspect]
     Indication: HYPERSENSITIVITY
     Dosage: THERAPY STARTED ABOUT 3 YEARS AGO
     Route: 048

REACTIONS (3)
  - Diarrhoea [Recovered/Resolved]
  - Unevaluable event [Recovered/Resolved]
  - Medication residue present [Unknown]
